FAERS Safety Report 5287367-X (Version None)
Quarter: 2007Q1

REPORT INFORMATION
  Report Type: 
  Country: None (occurrence: None)
  Receive Date: 20070116
  Receipt Date: 20061120
  Transmission Date: 20070707
  Serious: No
  Sender: FDA-Public Use
  Company Number: 2006SP004126

PATIENT
  Age: 61 Year
  Sex: Female
  Weight: 56.246 kg

DRUGS (5)
  1. LUNESTA [Suspect]
     Indication: INSOMNIA
     Dosage: 3 MG, HS, ORAL
     Route: 048
     Dates: start: 20061118, end: 20061120
  2. IMDUR [Concomitant]
  3. PROCARDIA [Concomitant]
  4. FENTANYL [Concomitant]
  5. PERCOCET [Concomitant]

REACTIONS (3)
  - DYSGEUSIA [None]
  - FEELING OF DESPAIR [None]
  - INITIAL INSOMNIA [None]
